FAERS Safety Report 13133436 (Version 1)
Quarter: 2017Q1

REPORT INFORMATION
  Report Type: Spontaneous
  Country: US (occurrence: US)
  Receive Date: 20170119
  Receipt Date: 20170119
  Transmission Date: 20170428
  Serious: Yes (Congenital Anomaly)
  Sender: FDA-Public Use
  Company Number: None

PATIENT
  Age: 29 Year
  Sex: Female
  Weight: 76.5 kg

DRUGS (2)
  1. MAKENA [Suspect]
     Active Substance: HYDROXYPROGESTERONE CAPROATE
     Indication: PREMATURE LABOUR
     Route: 058
     Dates: start: 20150801, end: 20151230
  2. PRENATAL VITAMIN [Concomitant]
     Active Substance: VITAMINS

REACTIONS (2)
  - Maternal drugs affecting foetus [None]
  - Exposure during pregnancy [None]

NARRATIVE: CASE EVENT DATE: 20160108
